FAERS Safety Report 4555677-7 (Version None)
Quarter: 2005Q1

REPORT INFORMATION
  Report Type: 
  Country: None (occurrence: None)
  Receive Date: 20050118
  Receipt Date: 20050112
  Transmission Date: 20050727
  Serious: Yes (Other)
  Sender: FDA-Public Use
  Company Number: 53196

PATIENT
  Age: 13 Month
  Sex: Male
  Weight: 11.3399 kg

DRUGS (2)
  1. IBUPROFEN [Suspect]
     Indication: PYREXIA
     Dosage: ONE DOSE, ONCE DAILY, TWO DAYS
     Dates: start: 20050105, end: 20050106
  2. IBUPROFEN [Suspect]
     Indication: TEETHING
     Dosage: ONE DOSE, ONCE DAILY, TWO DAYS
     Dates: start: 20050105, end: 20050106

REACTIONS (2)
  - CONVULSION [None]
  - LIVER FUNCTION TEST ABNORMAL [None]
